FAERS Safety Report 17635843 (Version 1)
Quarter: 2020Q2

REPORT INFORMATION
  Report Type: Spontaneous
  Country: FR (occurrence: FR)
  Receive Date: 20200407
  Receipt Date: 20200407
  Transmission Date: 20200713
  Serious: Yes (Hospitalization)
  Sender: FDA-Public Use
  Company Number: FR-TEVA-2020-FR-1219459

PATIENT
  Age: 49 Year
  Sex: Female
  Weight: 57 kg

DRUGS (2)
  1. ANGI SPRAY, COLLUTOIRE [CHLOROBUTANOL\HEXETIDINE\PROPIONIC ACID] [Suspect]
     Active Substance: CHLOROBUTANOL\HEXETIDINE\PROPIONIC ACID
     Indication: OROPHARYNGEAL PAIN
     Dosage: UNSPECIFIED
     Route: 048
     Dates: start: 201912, end: 201912
  2. KETOPROFENE [Suspect]
     Active Substance: KETOPROFEN
     Indication: PRODUCT USED FOR UNKNOWN INDICATION
     Dosage: UNSPECIFIED
     Route: 048
     Dates: start: 201912

REACTIONS (3)
  - Headache [Recovered/Resolved]
  - Vertigo [Recovered/Resolved]
  - Reversible cerebral vasoconstriction syndrome [Recovered/Resolved]

NARRATIVE: CASE EVENT DATE: 20191213
